FAERS Safety Report 16745505 (Version 1)
Quarter: 2019Q3

REPORT INFORMATION
  Report Type: Spontaneous
  Country: US (occurrence: US)
  Receive Date: 20190827
  Receipt Date: 20190827
  Transmission Date: 20191005
  Serious: No
  Sender: FDA-Public Use
  Company Number: US-PFIZER INC-2019365605

PATIENT
  Age: 80 Year
  Sex: Male
  Weight: 89.36 kg

DRUGS (2)
  1. ADVIL LIQUI-GELS [Suspect]
     Active Substance: IBUPROFEN
     Indication: PAIN MANAGEMENT
     Dosage: 4 DF, 3X/DAY (4-200MG CAPSULES TAKEN BY MOUTH EVERY 8 HOURS)
     Route: 048
     Dates: start: 20190819
  2. ADVIL LIQUI-GELS [Suspect]
     Active Substance: IBUPROFEN
     Indication: KNEE ARTHROPLASTY

REACTIONS (6)
  - Pruritus [Not Recovered/Not Resolved]
  - Poor quality product administered [Unknown]
  - Product taste abnormal [Unknown]
  - Overdose [Unknown]
  - Product physical issue [Unknown]
  - Product odour abnormal [Unknown]

NARRATIVE: CASE EVENT DATE: 20190819
